FAERS Safety Report 26158750 (Version 1)
Quarter: 2025Q4

REPORT INFORMATION
  Report Type: Spontaneous
  Country: US (occurrence: US)
  Receive Date: 20251215
  Receipt Date: 20251215
  Transmission Date: 20260118
  Serious: No
  Sender: BIOMARIN
  Company Number: US-BIOMARINAP-US-2025-170511

PATIENT
  Sex: Female

DRUGS (2)
  1. PALYNZIQ [Suspect]
     Active Substance: PEGVALIASE-PQPZ
     Indication: Phenylketonuria
     Dosage: 20 MILLIGRAM, QD
  2. PALYNZIQ [Suspect]
     Active Substance: PEGVALIASE-PQPZ
     Dosage: UNK

REACTIONS (7)
  - Injection site induration [Unknown]
  - Skin injury [Unknown]
  - Erythema [Unknown]
  - Skin irritation [Unknown]
  - Skin burning sensation [Unknown]
  - Pain of skin [Unknown]
  - Contusion [Unknown]
